FAERS Safety Report 5468628-8 (Version None)
Quarter: 2007Q3

REPORT INFORMATION
  Report Type: 
  Country: None (occurrence: None)
  Receive Date: 20070926
  Receipt Date: 20070919
  Transmission Date: 20080115
  Serious: Yes (Other)
  Sender: FDA-Public Use
  Company Number: FR-JNJFOC-20070904458

PATIENT
  Sex: Female

DRUGS (4)
  1. SPORANOX [Suspect]
     Indication: DRUG USE FOR UNKNOWN INDICATION
     Route: 065
  2. CYCLOSPORINE [Concomitant]
     Route: 065
  3. INSULIN [Concomitant]
     Route: 065
  4. CORTICOIDS [Concomitant]
     Route: 065

REACTIONS (1)
  - PANCYTOPENIA [None]
